FAERS Safety Report 23624163 (Version 1)
Quarter: 2024Q1

REPORT INFORMATION
  Report Type: Spontaneous
  Country: JP (occurrence: JP)
  Receive Date: 20240312
  Receipt Date: 20240312
  Transmission Date: 20240410
  Serious: Yes (Hospitalization, Other)
  Sender: FDA-Public Use
  Company Number: JP-MSD-2403JPN000505J

PATIENT
  Age: 8 Decade
  Sex: Female

DRUGS (6)
  1. KEYTRUDA [Suspect]
     Active Substance: PEMBROLIZUMAB
     Indication: Lung adenocarcinoma stage IV
     Dosage: UNK
     Route: 065
  2. AMOXICILLIN\CLAVULANATE POTASSIUM [Concomitant]
     Active Substance: AMOXICILLIN\CLAVULANATE POTASSIUM
     Dosage: 12 PACKAGES DAILY DIVIDED IN 2 DOSES JUST BEFORE BREAKFAST AND DINNER
     Route: 048
  3. UNSPECIFIED INGREDIENT [Concomitant]
     Active Substance: UNSPECIFIED INGREDIENT
     Dosage: 3 TABLETS DAILY DIVIDED IN 3 DOSES (MORNING, NOON, AND EVENING) AFTER MEALS
     Route: 048
  4. ESOMEPRAZOLE MAGNESIUM [Concomitant]
     Active Substance: ESOMEPRAZOLE\ESOMEPRAZOLE MAGNESIUM\ESOMEPRAZOLE MAGNESIUM DIHYDRATE
     Dosage: 20MG 1CAP DAILY ONCE AFTER DINNER)
     Route: 048
  5. NAPROXEN [Concomitant]
     Active Substance: NAPROXEN
     Dosage: 100 MG 3 TABLETS DAILY DIVIDED IN 3 DOSES (IN THE MORNING, NOON, AND EVENING) AFTER MEALS
     Route: 048
  6. ANAMORELIN HYDROCHLORIDE [Concomitant]
     Active Substance: ANAMORELIN HYDROCHLORIDE
     Dosage: 50 MG 2 TABLETS DAILY ONCE BEFORE SLEEP
     Route: 048

REACTIONS (2)
  - Nephrosclerosis [Unknown]
  - Tubulointerstitial nephritis [Recovering/Resolving]
